FAERS Safety Report 6700204-9 (Version None)
Quarter: 2010Q2

REPORT INFORMATION
  Report Type: 
  Country: None (occurrence: None)
  Receive Date: 20100428
  Receipt Date: 20100419
  Transmission Date: 20101027
  Serious: Yes (Other)
  Sender: FDA-Public Use
  Company Number: JP-PFIZER INC-2010047404

PATIENT

DRUGS (1)
  1. AROMASIN [Suspect]
     Dosage: 25 MG, 1X/DAY
     Route: 048

REACTIONS (2)
  - ANTIDIURETIC HORMONE ABNORMALITY [None]
  - NEPHROGENIC DIABETES INSIPIDUS [None]
